FAERS Safety Report 24308719 (Version 1)
Quarter: 2024Q3

REPORT INFORMATION
  Report Type: Spontaneous
  Country: ES (occurrence: ES)
  Receive Date: 20240911
  Receipt Date: 20240911
  Transmission Date: 20241016
  Serious: Yes (Other)
  Sender: GUERBET
  Company Number: None

PATIENT
  Age: 35 Year
  Sex: Female

DRUGS (5)
  1. DOTAREM [Suspect]
     Active Substance: GADOTERATE MEGLUMINE
     Indication: Magnetic resonance imaging
     Dosage: SINGLE DOSE
     Route: 042
     Dates: start: 20240822, end: 20240822
  2. LAMOTRIGINA AUROVITAS [Concomitant]
     Indication: Product used for unknown indication
     Dosage: 1 EVERY 12 HOURS
     Route: 048
     Dates: start: 20230826
  3. URSOBILANE [Concomitant]
     Indication: Product used for unknown indication
     Dosage: 1 EVERY 24 HOUR
     Route: 048
     Dates: start: 20240701
  4. LEVOTHYROXINE SODIUM [Concomitant]
     Active Substance: LEVOTHYROXINE SODIUM
     Indication: Product used for unknown indication
     Dosage: 1 TABLET PER DAY
     Route: 048
     Dates: start: 20240801
  5. URSOBILANE [Concomitant]
     Indication: Product used for unknown indication
     Dosage: 1 EVERY 24 HOURS
     Route: 048
     Dates: start: 20240624

REACTIONS (2)
  - Drug hypersensitivity [Recovered/Resolved]
  - Oropharyngeal pain [Recovered/Resolved]

NARRATIVE: CASE EVENT DATE: 20240822
